FAERS Safety Report 10209166 (Version 1)
Quarter: 2014Q2

REPORT INFORMATION
  Report Type: Report from Study
  Country: IT (occurrence: IT)
  Receive Date: 20140530
  Receipt Date: 20140530
  Transmission Date: 20141212
  Serious: Yes (Death)
  Sender: FDA-Public Use
  Company Number: IT-BAXTER-2014BAX028008

PATIENT
  Sex: 0

DRUGS (5)
  1. ENDOXAN BAXTER [Suspect]
     Indication: STEM CELL TRANSPLANT
     Route: 065
  2. THIOTEPA [Suspect]
     Indication: STEM CELL TRANSPLANT
     Route: 065
  3. FLUDARABINE [Suspect]
     Indication: STEM CELL TRANSPLANT
     Route: 065
  4. METHOTREXATE [Suspect]
     Indication: PROPHYLAXIS AGAINST GRAFT VERSUS HOST DISEASE
     Route: 065
  5. CYCLOSPORINE [Suspect]
     Indication: PROPHYLAXIS AGAINST GRAFT VERSUS HOST DISEASE
     Route: 065

REACTIONS (1)
  - Death [Fatal]
